FAERS Safety Report 7226569-X (Version None)
Quarter: 2010Q4

REPORT INFORMATION
  Report Type: 
  Country: None (occurrence: None)
  Receive Date: 20101126
  Receipt Date: 20100812
  Transmission Date: 20110411
  Serious: No
  Sender: FDA-Public Use
  Company Number: 313057

PATIENT
  Age: 57 Year
  Sex: Female

DRUGS (3)
  1. VICTOZA [Suspect]
     Indication: GLUCOSE TOLERANCE IMPAIRED
     Dosage: 1.2 MG, QD, SUBCUTANEOUS, 0.6 MG, QD, SUBCUTANEOUS
     Route: 058
  2. PRILOSEC (OMEPRAZOLE) [Concomitant]
  3. GLUCOPHAGE [Concomitant]

REACTIONS (4)
  - ABDOMINAL DISTENSION [None]
  - GASTROOESOPHAGEAL REFLUX DISEASE [None]
  - IMPAIRED GASTRIC EMPTYING [None]
  - NAUSEA [None]
